FAERS Safety Report 8063953-9 (Version None)
Quarter: 2012Q1

REPORT INFORMATION
  Report Type: 
  Country: None (occurrence: None)
  Receive Date: 20120123
  Receipt Date: 20120116
  Transmission Date: 20120608
  Serious: Yes (Other)
  Sender: FDA-Public Use
  Company Number: PHHY2012AR004361

PATIENT
  Age: 65 Year
  Sex: Male

DRUGS (2)
  1. ONBREZ [Suspect]
     Indication: CHRONIC OBSTRUCTIVE PULMONARY DISEASE
     Dosage: 150 UG, QD
  2. CLONAZEPAM [Concomitant]
     Indication: INSOMNIA
     Dosage: 1.5 MG, DAILY

REACTIONS (1)
  - RECTAL ABSCESS [None]
